FAERS Safety Report 15467882 (Version 1)
Quarter: 2018Q4

REPORT INFORMATION
  Report Type: Report from Study
  Country: ES (occurrence: ES)
  Receive Date: 20181005
  Receipt Date: 20181005
  Transmission Date: 20190204
  Serious: Yes (Hospitalization)
  Sender: FDA-Public Use
  Company Number: ES-TEVA-2018-ES-961129

PATIENT
  Age: 52 Year
  Sex: Female

DRUGS (3)
  1. ENALAPRIL MALEATO (2142MA) [Interacting]
     Active Substance: ENALAPRIL MALEATE
     Indication: HYPERTENSION
     Dosage: 20 MILLIGRAM DAILY;
     Route: 048
     Dates: start: 2014, end: 20160917
  2. ENANTYUM 25 MG CAPSULAS DURAS , 20 C?PSULAS [Interacting]
     Active Substance: DEXKETOPROFEN TROMETAMOL
     Dosage: 50 MILLIGRAM DAILY;
     Route: 048
     Dates: start: 20160908, end: 20160917
  3. CIPROFLOXACINO (2049A) [Suspect]
     Active Substance: CIPROFLOXACIN
     Route: 048
     Dates: start: 20160908, end: 20160917

REACTIONS (2)
  - Tubulointerstitial nephritis [Recovered/Resolved]
  - Drug interaction [Unknown]

NARRATIVE: CASE EVENT DATE: 20160917
